FAERS Safety Report 18628158 (Version 1)
Quarter: 2020Q4

REPORT INFORMATION
  Report Type: Spontaneous
  Country: US (occurrence: US)
  Receive Date: 20201216
  Receipt Date: 20201216
  Transmission Date: 20210114
  Serious: Yes (Death)
  Sender: FDA-Public Use
  Company Number: None

PATIENT
  Age: 51 Year
  Sex: Female

DRUGS (17)
  1. BACLOFEN. [Concomitant]
     Active Substance: BACLOFEN
  2. VITAMIN D3 [Concomitant]
     Active Substance: CHOLECALCIFEROL
  3. INVOKANA [Concomitant]
     Active Substance: CANAGLIFLOZIN
  4. POT CHLORIDE ER [Concomitant]
  5. VIIBRYD [Concomitant]
     Active Substance: VILAZODONE HYDROCHLORIDE
  6. HYDROCHLOROT [Concomitant]
     Active Substance: HYDROCHLOROTHIAZIDE
  7. TOPIRAMATE. [Concomitant]
     Active Substance: TOPIRAMATE
  8. ATORVASTATIN [Concomitant]
     Active Substance: ATORVASTATIN
  9. ONGLYZA [Concomitant]
     Active Substance: SAXAGLIPTIN HYDROCHLORIDE
  10. SOLU-MEDROL [Concomitant]
     Active Substance: METHYLPREDNISOLONE SODIUM SUCCINATE
  11. BUPROPION SR [Concomitant]
     Active Substance: BUPROPION HYDROCHLORIDE
  12. NYSTATIN POW [Concomitant]
  13. MONTELUKAST [Concomitant]
     Active Substance: MONTELUKAST SODIUM
  14. RANITIDINE. [Concomitant]
     Active Substance: RANITIDINE
  15. ROPINIROLE. [Concomitant]
     Active Substance: ROPINIROLE
  16. XOLAIR [Suspect]
     Active Substance: OMALIZUMAB
     Indication: ASTHMA
     Route: 058
     Dates: start: 20190720
  17. FUROSEMIDE. [Concomitant]
     Active Substance: FUROSEMIDE

REACTIONS (1)
  - COVID-19 [None]

NARRATIVE: CASE EVENT DATE: 20201207
